FAERS Safety Report 19677013 (Version 6)
Quarter: 2022Q1

REPORT INFORMATION
  Report Type: Report from Study
  Country: US (occurrence: US)
  Receive Date: 20210809
  Receipt Date: 20220131
  Transmission Date: 20220423
  Serious: No
  Sender: FDA-Public Use
  Company Number: US-KYOWAKIRIN-2021BKK013396

PATIENT

DRUGS (3)
  1. POTELIGEO [Suspect]
     Active Substance: MOGAMULIZUMAB-KPKC
     Indication: Cutaneous T-cell lymphoma
     Dosage: UNK
     Route: 065
  2. KCL [Concomitant]
     Active Substance: POTASSIUM CHLORIDE
     Indication: Product used for unknown indication
     Dosage: UNK
     Route: 065
  3. COVID-19 VACCINE [Concomitant]
     Indication: COVID-19 prophylaxis
     Dosage: BOOSTER SHOT
     Route: 065
     Dates: start: 202112, end: 202112

REACTIONS (27)
  - Tinnitus [Unknown]
  - Skin disorder [Recovering/Resolving]
  - Hot flush [Not Recovered/Not Resolved]
  - Trigger finger [Unknown]
  - Anosmia [Not Recovered/Not Resolved]
  - Somnolence [Unknown]
  - Gastric dilatation [Unknown]
  - Ageusia [Not Recovered/Not Resolved]
  - Blood potassium decreased [Unknown]
  - Skin lesion [Unknown]
  - Pain [Unknown]
  - Arthralgia [Unknown]
  - Sensitivity to weather change [Unknown]
  - Productive cough [Unknown]
  - Dysphagia [Unknown]
  - Pruritus [Unknown]
  - Adverse food reaction [Unknown]
  - Malaise [Unknown]
  - Sleep disorder [Unknown]
  - Nervous system disorder [Unknown]
  - Incision site impaired healing [Unknown]
  - Decreased appetite [Unknown]
  - Weight increased [Unknown]
  - Nausea [Unknown]
  - Diarrhoea [Unknown]
  - Fatigue [Unknown]
  - Rash [Unknown]

NARRATIVE: CASE EVENT DATE: 20210901
